FAERS Safety Report 19097320 (Version 1)
Quarter: 2021Q2

REPORT INFORMATION
  Report Type: Other
  Country: FR (occurrence: FR)
  Receive Date: 20210406
  Receipt Date: 20210406
  Transmission Date: 20210717
  Serious: Yes (Other)
  Sender: FDA-Public Use
  Company Number: FR-SERVIER-S21003206

PATIENT

DRUGS (2)
  1. GEMCITABINE. [Suspect]
     Active Substance: GEMCITABINE
     Indication: ANGIOCENTRIC LYMPHOMA
     Dosage: 1670 MG
     Route: 042
     Dates: start: 20210225, end: 20210225
  2. ONCASPAR [Suspect]
     Active Substance: PEGASPARGASE
     Indication: ANGIOCENTRIC LYMPHOMA
     Dosage: 3340 IU
     Route: 042
     Dates: start: 20210226, end: 20210226

REACTIONS (2)
  - Cholestatic liver injury [Not Recovered/Not Resolved]
  - Pancreatitis acute [Recovering/Resolving]

NARRATIVE: CASE EVENT DATE: 20210314
